FAERS Safety Report 9347273 (Version 1)
Quarter: 2013Q2

REPORT INFORMATION
  Report Type: Spontaneous
  Country: US (occurrence: US)
  Receive Date: 20130613
  Receipt Date: 20130613
  Transmission Date: 20140414
  Serious: Yes (Other)
  Sender: FDA-Public Use
  Company Number: US-SAVIENT-2013S1000050

PATIENT
  Sex: Male

DRUGS (4)
  1. OXANDROLONE [Suspect]
     Indication: CACHEXIA
     Route: 048
  2. OXANDRIN [Suspect]
     Indication: CACHEXIA
     Dates: start: 2000
  3. SEROSTIM [Suspect]
     Indication: CACHEXIA
  4. CRESTOR [Concomitant]
     Indication: BLOOD CHOLESTEROL

REACTIONS (11)
  - Myocardial infarction [Recovered/Resolved]
  - Basedow^s disease [Recovered/Resolved]
  - Weight decreased [Recovered/Resolved]
  - Osteoarthritis [Not Recovered/Not Resolved]
  - Surgery [Recovered/Resolved]
  - Joint arthroplasty [Recovered/Resolved]
  - Irritability [Recovered/Resolved]
  - Joint swelling [Not Recovered/Not Resolved]
  - Myalgia [Not Recovered/Not Resolved]
  - Pain [Recovering/Resolving]
  - Local swelling [Not Recovered/Not Resolved]
